FAERS Safety Report 6498389-5 (Version None)
Quarter: 2009Q4

REPORT INFORMATION
  Report Type: 
  Country: None (occurrence: None)
  Receive Date: 20091127
  Receipt Date: 20090821
  Transmission Date: 20100525
  Serious: Yes (Hospitalization)
  Sender: FDA-Public Use
  Company Number: 290873

PATIENT
  Age: 43 Year
  Sex: Male

DRUGS (3)
  1. NOVOLOG [Suspect]
     Indication: TYPE 2 DIABETES MELLITUS
     Dosage: SUBCUTANEOUS-PUMP; 20 IU, SINGLE, SUBCUTAN.-PUMP
     Route: 058
     Dates: start: 20090819, end: 20090819
  2. NOVOLOG [Suspect]
     Indication: TYPE 2 DIABETES MELLITUS
     Dosage: SUBCUTANEOUS-PUMP; 20 IU, SINGLE, SUBCUTAN.-PUMP
     Route: 058
     Dates: start: 20010101
  3. NOVOLOG [Suspect]

REACTIONS (1)
  - BLOOD GLUCOSE INCREASED [None]
